FAERS Safety Report 9564692 (Version 1)
Quarter: 2013Q3

REPORT INFORMATION
  Report Type: Spontaneous
  Country: US (occurrence: US)
  Receive Date: 20130930
  Receipt Date: 20130930
  Transmission Date: 20140515
  Serious: No
  Sender: FDA-Public Use
  Company Number: US-PFIZER INC-2013279731

PATIENT
  Age: 59 Year
  Sex: Male
  Weight: 86.17 kg

DRUGS (6)
  1. PRISTIQ [Suspect]
     Indication: MAJOR DEPRESSION
     Dosage: 50 MG, DAILY
     Route: 048
     Dates: start: 2012
  2. PRISTIQ [Suspect]
     Dosage: 50 MG, DAILY
     Route: 048
     Dates: start: 2013
  3. SEROQUEL [Suspect]
     Indication: MAJOR DEPRESSION
     Dosage: UNK
  4. ARMOUR THYROID [Concomitant]
     Indication: HYPOTHYROIDISM
     Dosage: 90 MG, DAILY
     Route: 048
  5. ANDROGEL [Concomitant]
     Indication: HYPOGONADISM
     Dosage: UNK
  6. KLONOPIN [Concomitant]
     Indication: ANXIETY
     Dosage: 1 MG, DAILY
     Route: 048

REACTIONS (2)
  - Depression [Unknown]
  - Drug ineffective [Unknown]
